FAERS Safety Report 19013346 (Version 1)
Quarter: 2021Q1

REPORT INFORMATION
  Report Type: Spontaneous
  Country: US (occurrence: US)
  Receive Date: 20210316
  Receipt Date: 20210316
  Transmission Date: 20210420
  Serious: No
  Sender: FDA-Public Use
  Company Number: None

PATIENT
  Age: 75 Year
  Sex: Female

DRUGS (11)
  1. ATSORVASTATIN 10 MG [Concomitant]
  2. GLIPIZIDE 5 MG [Concomitant]
     Active Substance: GLIPIZIDE
  3. RAMIPRIL 5 MG [Concomitant]
     Active Substance: RAMIPRIL
  4. GABAPENTIN 300 MG [Concomitant]
     Active Substance: GABAPENTIN
  5. FAMOTIDINE 20 MG [Concomitant]
     Active Substance: FAMOTIDINE
  6. TRAMADOL 50 MG [Concomitant]
     Active Substance: TRAMADOL
  7. LOKELMA [Suspect]
     Active Substance: SODIUM ZIRCONIUM CYCLOSILICATE
     Indication: HYPERKALAEMIA
     Route: 048
  8. ASPIRIN 81 MG [Concomitant]
     Active Substance: ASPIRIN
  9. METFORMIN [Concomitant]
     Active Substance: METFORMIN HYDROCHLORIDE
  10. METOPROLOL ER 100 MG [Concomitant]
  11. ACETAMINOPHEN 325 MG [Concomitant]
     Active Substance: ACETAMINOPHEN

REACTIONS (2)
  - Constipation [None]
  - Nausea [None]

NARRATIVE: CASE EVENT DATE: 20201220
